FAERS Safety Report 7850293-3 (Version None)
Quarter: 2011Q4

REPORT INFORMATION
  Report Type: 
  Country: None (occurrence: None)
  Receive Date: 20111026
  Receipt Date: 20111011
  Transmission Date: 20120403
  Serious: Yes (Death, Hospitalization)
  Sender: FDA-Public Use
  Company Number: FR-VALEANT-2011VX003022

PATIENT
  Age: 41 Year
  Sex: Male

DRUGS (16)
  1. IMPAVIDO [Suspect]
     Route: 048
     Dates: start: 20110801, end: 20110915
  2. CLONAZEPAM [Concomitant]
     Route: 065
     Dates: end: 20110915
  3. RISPERDAL [Concomitant]
     Route: 065
     Dates: end: 20110915
  4. ROCEPHIN [Concomitant]
     Route: 065
     Dates: start: 20110808
  5. MEDROL [Concomitant]
     Route: 065
  6. IMOVANE [Concomitant]
     Route: 065
     Dates: end: 20110915
  7. ANCOTIL [Suspect]
     Indication: ACANTHAMOEBA INFECTION
     Route: 042
     Dates: start: 20110801, end: 20110915
  8. REPAGLINIDE [Concomitant]
     Route: 065
  9. AMOXICILLIN [Concomitant]
     Indication: URINARY TRACT INFECTION
     Route: 065
     Dates: start: 20110901
  10. PROGRAF [Concomitant]
     Route: 065
     Dates: end: 20110915
  11. PREVISCAN [Concomitant]
     Route: 065
  12. VANCOMYCIN HCL [Concomitant]
     Indication: URINARY TRACT INFECTION
     Route: 065
     Dates: start: 20110901
  13. GENTAMICIN [Concomitant]
     Indication: URINARY TRACT INFECTION
     Route: 065
     Dates: start: 20110901
  14. AMBISOME [Suspect]
     Indication: ACANTHAMOEBA INFECTION
     Route: 042
     Dates: start: 20110801, end: 20110915
  15. MEDROL [Concomitant]
     Indication: MENINGIOMA
     Route: 065
  16. LEXOMIL [Concomitant]
     Route: 065
     Dates: end: 20110915

REACTIONS (11)
  - SEPTIC SHOCK [None]
  - GASTROINTESTINAL TOXICITY [None]
  - URINARY TRACT INFECTION [None]
  - DIARRHOEA [None]
  - HAEMATOTOXICITY [None]
  - DRUG LEVEL ABOVE THERAPEUTIC [None]
  - URINARY TRACT INFECTION ENTEROCOCCAL [None]
  - OVERDOSE [None]
  - STAPHYLOCOCCUS TEST POSITIVE [None]
  - GASTROINTESTINAL NECROSIS [None]
  - BONE MARROW FAILURE [None]
